FAERS Safety Report 8287522-0 (Version None)
Quarter: 2012Q2

REPORT INFORMATION
  Report Type: 
  Country: None (occurrence: None)
  Receive Date: 20120416
  Receipt Date: 20120310
  Transmission Date: 20120825
  Serious: Yes (Other)
  Sender: FDA-Public Use
  Company Number: JM-ROCHE-1048416

PATIENT
  Sex: Female
  Weight: 59 kg

DRUGS (6)
  1. METHOTREXATE [Concomitant]
     Indication: RHEUMATOID ARTHRITIS
     Route: 048
     Dates: start: 20110517
  2. FOLIC ACID [Concomitant]
     Indication: RHEUMATOID ARTHRITIS
     Route: 048
     Dates: start: 20110517
  3. LISONORM [Concomitant]
     Indication: HYPERTENSION
     Dosage: DOSE: 10-20 MG
     Route: 048
     Dates: start: 20100330
  4. CELEBREX [Concomitant]
     Indication: RHEUMATOID ARTHRITIS
     Route: 048
     Dates: start: 20080902
  5. ACTEMRA [Suspect]
     Indication: RHEUMATOID ARTHRITIS
     Route: 042
     Dates: start: 20120308
  6. PREDNISONE TAB [Concomitant]
     Indication: RHEUMATOID ARTHRITIS
     Route: 048
     Dates: start: 20010529

REACTIONS (6)
  - VOMITING [None]
  - MALAISE [None]
  - NAUSEA [None]
  - HYPERSENSITIVITY [None]
  - PYREXIA [None]
  - SYNCOPE [None]
